FAERS Safety Report 18798559 (Version 2)
Quarter: 2021Q1

REPORT INFORMATION
  Report Type: Spontaneous
  Country: US (occurrence: US)
  Receive Date: 20210128
  Receipt Date: 20210129
  Transmission Date: 20210419
  Serious: No
  Sender: FDA-Public Use
  Company Number: US-ELI_LILLY_AND_COMPANY-US202012014186

PATIENT
  Age: 61 Year
  Sex: Male

DRUGS (3)
  1. NEOSPORIN [BACITRACIN ZINC;NEOMYCIN SULFATE;P [Concomitant]
     Indication: PRODUCT USED FOR UNKNOWN INDICATION
     Dosage: UNK, UNKNOWN
  2. PREDNISONE. [Concomitant]
     Active Substance: PREDNISONE
     Indication: PRODUCT USED FOR UNKNOWN INDICATION
     Dosage: UNK, UNKNOWN
  3. BAMLANIVIMAB. [Suspect]
     Active Substance: BAMLANIVIMAB
     Indication: COVID-19
     Dosage: UNK UNK, SINGLE
     Route: 042
     Dates: start: 20201228, end: 20201228

REACTIONS (13)
  - Feeling hot [Not Recovered/Not Resolved]
  - Feeling cold [Recovered/Resolved]
  - Hyperhidrosis [Not Recovered/Not Resolved]
  - Eye pain [Not Recovered/Not Resolved]
  - Tremor [Recovered/Resolved]
  - Chills [Recovered/Resolved]
  - Rhinorrhoea [Not Recovered/Not Resolved]
  - Vomiting [Unknown]
  - Temperature regulation disorder [Recovering/Resolving]
  - Anosmia [Not Recovered/Not Resolved]
  - Cough [Not Recovered/Not Resolved]
  - Decreased appetite [Not Recovered/Not Resolved]
  - Headache [Not Recovered/Not Resolved]

NARRATIVE: CASE EVENT DATE: 202012
